FAERS Safety Report 10861444 (Version 3)
Quarter: 2015Q1

REPORT INFORMATION
  Report Type: Spontaneous
  Country: GB (occurrence: GB)
  Receive Date: 20150224
  Receipt Date: 20150310
  Transmission Date: 20150721
  Serious: Yes (Hospitalization)
  Sender: FDA-Public Use
  Company Number: GB-TEVA-541566ACC

PATIENT
  Age: 82 Year
  Sex: Male

DRUGS (4)
  1. ASPIRIN. [Concomitant]
     Active Substance: ASPIRIN
     Indication: ANTIPLATELET THERAPY
     Dosage: 75 MILLIGRAM DAILY; 75 MG TABLETS ONCE A DAY FROM 4-6 YEARS AGO, DAILY DOSE 75 MILLIGRAM
     Route: 048
     Dates: end: 201312
  2. NIFEDIPINE. [Concomitant]
     Active Substance: NIFEDIPINE
     Indication: HYPERTENSION
     Dosage: 6 MILLIGRAM DAILY; 6MGSTART DATE: 4-6 YEARS AGO, DAILY DOSE: 6 MILLIGRAM
     Route: 048
     Dates: end: 201312
  3. IKOREL [Suspect]
     Active Substance: NICORANDIL
     Dosage: 20 MILLIGRAM DAILY; START DATE: 4-6 YEARS AGO, DAILY DOSE 20 MILLIGRAM
     Route: 048
     Dates: end: 201312
  4. BISOPROLOL FUMARATE. [Suspect]
     Active Substance: BISOPROLOL FUMARATE
     Indication: HYPERTENSION
     Dosage: 1 DOSAGE FORMS DAILY; START DATE: 4-6 YEARS AGO, 2.5 MG TABLETS 1OD, DAILY DOSE 1 DOSAGE FORMS
     Route: 048
     Dates: end: 201312

REACTIONS (3)
  - Cardiac arrest [Unknown]
  - Heart rate decreased [Unknown]
  - Dizziness [Unknown]

NARRATIVE: CASE EVENT DATE: 201312
